FAERS Safety Report 25885620 (Version 1)
Quarter: 2025Q4

REPORT INFORMATION
  Report Type: Spontaneous
  Country: US (occurrence: US)
  Receive Date: 20251006
  Receipt Date: 20251006
  Transmission Date: 20260118
  Serious: No
  Sender: BAYER HEALTHCARE PHARMACEUTICALS INC.
  Company Number: US-BAYER-2025A128883

PATIENT

DRUGS (2)
  1. ADEMPAS [Suspect]
     Active Substance: RIOCIGUAT
  2. SOTATERCEPT [Concomitant]
     Active Substance: SOTATERCEPT
     Dosage: UNK UNK, Q4WK

REACTIONS (1)
  - Headache [Recovering/Resolving]
